FAERS Safety Report 5192008-6 (Version None)
Quarter: 2006Q4

REPORT INFORMATION
  Report Type: 
  Country: None (occurrence: None)
  Receive Date: 20061227
  Receipt Date: 20061218
  Transmission Date: 20070319
  Serious: Yes (Hospitalization)
  Sender: FDA-Public Use
  Company Number: IT-SOLVAY-00306004161

PATIENT
  Age: 27142 Day
  Sex: Female

DRUGS (4)
  1. TAVOR [Concomitant]
     Indication: ILL-DEFINED DISORDER
     Dosage: DAILY DOSE: .25 MILLIGRAM(S)
     Route: 048
  2. CREON [Suspect]
     Indication: PANCREATECTOMY
     Dosage: DAILY DOSE: 450 MILLIGRAM(S)
     Route: 048
     Dates: start: 20050101
  3. IRON [Concomitant]
     Indication: ILL-DEFINED DISORDER
     Dosage: DAILY DOSE: 5 DROPS
     Route: 048
  4. SUPRADYN [Concomitant]
     Indication: ILL-DEFINED DISORDER
     Dosage: DAILY DOSE: .5 EFFERVESCENT TABLET
     Route: 048

REACTIONS (1)
  - LETHARGY [None]
